FAERS Safety Report 7709100-1 (Version None)
Quarter: 2011Q3

REPORT INFORMATION
  Report Type: 
  Country: None (occurrence: None)
  Receive Date: 20110825
  Receipt Date: 20110810
  Transmission Date: 20111222
  Serious: Yes (Other)
  Sender: FDA-Public Use
  Company Number: PHEH2011US00956

PATIENT
  Sex: Female

DRUGS (5)
  1. ALPRAZOLAM [Concomitant]
     Dosage: 5 MG, BID
  2. CRESTOR [Concomitant]
     Dosage: 10 MG, QD
  3. VITAMIN D [Concomitant]
     Dosage: 1000 MG, BID
  4. DIOVAN HCT [Suspect]
     Dosage: 1 DF (320/25 MG), DAILY
  5. TRILIPIX [Concomitant]
     Dosage: 135 MG, QD

REACTIONS (8)
  - DEPRESSION [None]
  - BLOOD TRIGLYCERIDES INCREASED [None]
  - BLOOD GLUCOSE INCREASED [None]
  - ROAD TRAFFIC ACCIDENT [None]
  - BLOOD CHOLESTEROL INCREASED [None]
  - WEIGHT INCREASED [None]
  - LOSS OF CONSCIOUSNESS [None]
  - BACK PAIN [None]
